FAERS Safety Report 8517007-5 (Version None)
Quarter: 2012Q3

REPORT INFORMATION
  Report Type: 
  Country: None (occurrence: None)
  Receive Date: 20120718
  Receipt Date: 20120711
  Transmission Date: 20120928
  Serious: Yes (Death)
  Sender: FDA-Public Use
  Company Number: FR-NOVOPROD-350079

PATIENT
  Age: 43 Year
  Sex: Male

DRUGS (4)
  1. METFORMIN HYDROCHLORIDE [Concomitant]
  2. GLICAZIDA [Concomitant]
  3. CRESTOR [Concomitant]
  4. VICTOZA [Suspect]
     Indication: TYPE 2 DIABETES MELLITUS
     Dosage: 0.6 MG, QD
     Route: 058
     Dates: start: 20120128, end: 20120201

REACTIONS (2)
  - CEREBRAL HAEMORRHAGE [None]
  - ANEURYSM RUPTURED [None]
